FAERS Safety Report 9347134 (Version 2)
Quarter: 2013Q3

REPORT INFORMATION
  Report Type: Spontaneous
  Country: US (occurrence: US)
  Receive Date: 20130613
  Receipt Date: 20130725
  Transmission Date: 20140515
  Serious: Yes (Other)
  Sender: FDA-Public Use
  Company Number: CHPA2013US009707

PATIENT
  Sex: Female

DRUGS (3)
  1. PERDIEM OVERNIGHT RELIEF PILLS [Suspect]
     Indication: CONSTIPATION
     Dosage: 3 DF, QHS
     Route: 048
  2. PERDIEM OVERNIGHT RELIEF PILLS [Suspect]
     Dosage: 2 DF, QHS
     Route: 048
  3. BABY ASPIRIN [Concomitant]
     Indication: CARDIAC DISORDER
     Dosage: UNK, UNK

REACTIONS (4)
  - Blood cholesterol increased [Not Recovered/Not Resolved]
  - Incorrect dose administered [Unknown]
  - Incorrect drug administration duration [Unknown]
  - Drug ineffective [Unknown]
